FAERS Safety Report 9684049 (Version 1)
Quarter: 2013Q4

REPORT INFORMATION
  Report Type: Spontaneous
  Country: US (occurrence: US)
  Receive Date: 20131112
  Receipt Date: 20131112
  Transmission Date: 20140711
  Serious: No
  Sender: FDA-Public Use
  Company Number: US-ENDO PHARMACEUTICALS INC.-HCTZ20120004

PATIENT
  Sex: Female

DRUGS (2)
  1. HYDROCHLOROTHIAZIDE TABLETS 25MG [Suspect]
     Indication: HYPERTENSION
     Route: 048
     Dates: start: 20120128
  2. CALCIUM [Concomitant]
     Indication: SUPPLEMENTATION THERAPY

REACTIONS (3)
  - Dyspnoea [Not Recovered/Not Resolved]
  - Feeling abnormal [Unknown]
  - Dizziness [Not Recovered/Not Resolved]
